FAERS Safety Report 10792503 (Version 6)
Quarter: 2015Q3

REPORT INFORMATION
  Report Type: Report from Study
  Country: CA (occurrence: CA)
  Receive Date: 20150213
  Receipt Date: 20150908
  Transmission Date: 20151125
  Serious: Yes (Hospitalization, Other)
  Sender: FDA-Public Use
  Company Number: PHHY2014CA027156

PATIENT
  Age: 50 Year
  Sex: Male

DRUGS (1)
  1. SANDOSTATIN LAR DEPOT [Suspect]
     Active Substance: OCTREOTIDE ACETATE
     Indication: NEUROENDOCRINE TUMOUR
     Dosage: 30 MG, QMO (EVERY 4 WEEKS)
     Route: 030
     Dates: start: 20140130

REACTIONS (31)
  - Nausea [Unknown]
  - Weight decreased [Unknown]
  - Faecal volume decreased [Unknown]
  - Frequent bowel movements [Unknown]
  - Dehydration [Unknown]
  - Subileus [Recovering/Resolving]
  - Mucous stools [Unknown]
  - Pain [Unknown]
  - Fatigue [Unknown]
  - Renal failure [Recovering/Resolving]
  - Feeding disorder [Unknown]
  - Faeces soft [Unknown]
  - Nephritis [Recovering/Resolving]
  - Intestinal obstruction [Unknown]
  - Asthenia [Unknown]
  - Vomiting [Unknown]
  - Malignant neoplasm progression [Unknown]
  - Decreased appetite [Recovering/Resolving]
  - Kidney infection [Unknown]
  - Blood pressure systolic increased [Unknown]
  - Hyperhidrosis [Unknown]
  - Abdominal pain [Unknown]
  - Discomfort [Unknown]
  - Thirst [Unknown]
  - Chills [Unknown]
  - Nasopharyngitis [Unknown]
  - Malaise [Unknown]
  - Intra-abdominal pressure increased [Unknown]
  - Diarrhoea [Recovering/Resolving]
  - Hunger [Unknown]
  - Heart rate increased [Unknown]

NARRATIVE: CASE EVENT DATE: 2014
